FAERS Safety Report 20462156 (Version 1)
Quarter: 2022Q1

REPORT INFORMATION
  Report Type: Report from Study
  Country: DO (occurrence: DO)
  Receive Date: 20220211
  Receipt Date: 20220211
  Transmission Date: 20220423
  Serious: Yes (Hospitalization, Other)
  Sender: FDA-Public Use
  Company Number: DO-NOVARTISPH-NVSC2021DO253956

PATIENT
  Sex: Female

DRUGS (4)
  1. KISQALI [Suspect]
     Active Substance: RIBOCICLIB
     Indication: Breast cancer
     Dosage: 600 MG, QD
     Route: 048
     Dates: start: 20210913
  2. DORIVAL [Concomitant]
     Indication: Pain in extremity
     Dosage: UNK
     Route: 065
  3. DORIVAL [Concomitant]
     Indication: Breast pain
  4. NEOCAL [Concomitant]
     Indication: Mobility decreased
     Dosage: UNK
     Route: 065

REACTIONS (15)
  - Ill-defined disorder [Unknown]
  - Haemorrhoids [Unknown]
  - Breast neoplasm [Unknown]
  - Mobility decreased [Unknown]
  - Pain in extremity [Unknown]
  - Illness [Unknown]
  - Constipation [Unknown]
  - Asthenia [Unknown]
  - Breast pain [Unknown]
  - Spinal deformity [Unknown]
  - Movement disorder [Unknown]
  - Obesity [Unknown]
  - Alopecia [Unknown]
  - Diarrhoea [Unknown]
  - Drug ineffective [Unknown]
